FAERS Safety Report 20872571 (Version 1)
Quarter: 2022Q2

REPORT INFORMATION
  Report Type: Other
  Country: PL (occurrence: PL)
  Receive Date: 20220525
  Receipt Date: 20220525
  Transmission Date: 20220720
  Serious: Yes (Death, Hospitalization, Other)
  Sender: FDA-Public Use
  Company Number: PL-VELOXIS PHARMACEUTICALS-2022VELPL-000314

PATIENT
  Age: 48 Year
  Sex: Female

DRUGS (2)
  1. MYCOPHENOLATE MOFETIL [Suspect]
     Active Substance: MYCOPHENOLATE MOFETIL
     Indication: Prophylaxis against transplant rejection
     Route: 065
  2. TACROLIMUS [Suspect]
     Active Substance: TACROLIMUS
     Indication: Prophylaxis against transplant rejection
     Route: 065

REACTIONS (7)
  - Multiple organ dysfunction syndrome [Fatal]
  - COVID-19 [Fatal]
  - Clostridium difficile infection [Unknown]
  - Abdominal infection [Unknown]
  - Renal transplant failure [Unknown]
  - Vascular graft complication [Unknown]
  - Off label use [Unknown]

NARRATIVE: CASE EVENT DATE: 20201201
